FAERS Safety Report 4818792-6 (Version None)
Quarter: 2005Q4

REPORT INFORMATION
  Report Type: 
  Country: None (occurrence: None)
  Receive Date: 20051101
  Receipt Date: 20051019
  Transmission Date: 20060501
  Serious: Yes (Other)
  Sender: FDA-Public Use
  Company Number: 2005144836

PATIENT
  Age: 50 Year
  Sex: Female
  Weight: 52.6173 kg

DRUGS (5)
  1. CELEBREX [Suspect]
     Indication: ARTHRITIS
     Dates: start: 20040101, end: 20040101
  2. NEURONTIN [Suspect]
     Indication: NEURALGIA
     Dosage: 2400 MG (800 MG, 3 IN 1 D)
     Dates: start: 20040101
  3. PROZAC [Concomitant]
  4. TRAZODONE HCL [Concomitant]
  5. ALBUTEROL [Concomitant]

REACTIONS (3)
  - GLAUCOMA [None]
  - HYPERSENSITIVITY [None]
  - INCORRECT DOSE ADMINISTERED [None]
